FAERS Safety Report 7150106-1 (Version None)
Quarter: 2010Q4

REPORT INFORMATION
  Report Type: 
  Country: None (occurrence: None)
  Receive Date: 20101210
  Receipt Date: 20101126
  Transmission Date: 20110411
  Serious: Yes (Hospitalization)
  Sender: FDA-Public Use
  Company Number: GB-US-EMD SERONO, INC.-7029244

PATIENT
  Sex: Female

DRUGS (1)
  1. REBIF [Suspect]
     Indication: RELAPSING-REMITTING MULTIPLE SCLEROSIS
     Dates: start: 20100409, end: 20101101

REACTIONS (4)
  - BLOOD TEST ABNORMAL [None]
  - CONTUSION [None]
  - OEDEMA PERIPHERAL [None]
  - PROTEIN URINE PRESENT [None]
